FAERS Safety Report 11895679 (Version 1)
Quarter: 2016Q1

REPORT INFORMATION
  Report Type: Spontaneous
  Country: GR (occurrence: GR)
  Receive Date: 20160107
  Receipt Date: 20160107
  Transmission Date: 20160526
  Serious: Yes (Other)
  Sender: FDA-Public Use
  Company Number: GR-BRISTOL-MYERS SQUIBB COMPANY-BMS-2015-087880

PATIENT
  Sex: Female

DRUGS (6)
  1. QUEPIN [Concomitant]
     Indication: DEPRESSION
     Dosage: 300 MG, QD
     Route: 065
  2. AMISULPRIDE [Concomitant]
     Active Substance: AMISULPRIDE
     Indication: DEPRESSION
     Dosage: 100 MG, QD
     Route: 065
  3. NEUROSEDINE [Concomitant]
     Indication: DEPRESSION
     Dosage: 300 MG, BID
     Route: 065
  4. GLUCOPHAGE [Suspect]
     Active Substance: METFORMIN HYDROCHLORIDE
     Indication: TYPE 2 DIABETES MELLITUS
     Dosage: 1000 MG, QD
     Route: 065
  5. THYROHORMONE [Concomitant]
     Indication: PRODUCT USED FOR UNKNOWN INDICATION
     Dosage: 0.1 MG, QD
     Route: 065
  6. EFAXIN [Concomitant]
     Indication: DEPRESSION
     Dosage: 75 MG, QD
     Route: 065

REACTIONS (1)
  - Biliary colic [Recovered/Resolved]
